FAERS Safety Report 6256054-3 (Version None)
Quarter: 2009Q2

REPORT INFORMATION
  Report Type: 
  Country: None (occurrence: None)
  Receive Date: 20090630
  Receipt Date: 20090630
  Transmission Date: 20091009
  Serious: No
  Sender: FDA-Public Use
  Company Number: None

PATIENT
  Sex: Female
  Weight: 97.1 kg

DRUGS (2)
  1. CISPLATIN [Suspect]
     Dosage: 265 MG
     Dates: end: 20090615
  2. PACLITAXEL [Suspect]
     Dosage: 525 MG
     Dates: end: 20090615

REACTIONS (2)
  - LEUKOPENIA [None]
  - NEUTROPENIA [None]
